FAERS Safety Report 9254433 (Version 1)
Quarter: 2013Q2

REPORT INFORMATION
  Report Type: Spontaneous
  Country: US (occurrence: None)
  Receive Date: 20130422
  Receipt Date: 20130422
  Transmission Date: 20140414
  Serious: Yes (Other)
  Sender: FDA-Public Use
  Company Number: 2013P1004708

PATIENT
  Age: 21 Year
  Sex: Female

DRUGS (3)
  1. AMIODARONE [Suspect]
     Dosage: 200MG QD 9 YEARS
  2. VERAPAMIL [Suspect]
     Indication: VENTRICULAR FIBRILLATION
     Dosage: 240 MG;QD 9 YEARS
  3. METOPROLOL [Concomitant]

REACTIONS (6)
  - Abortion spontaneous [None]
  - Pregnancy [None]
  - Sudden infant death syndrome [None]
  - Sudden cardiac death [None]
  - Ventricular tachycardia [None]
  - Exposure during pregnancy [None]
